FAERS Safety Report 17654001 (Version 2)
Quarter: 2020Q3

REPORT INFORMATION
  Report Type: Report from Study
  Country: None (occurrence: US)
  Receive Date: 20200410
  Receipt Date: 20200715
  Transmission Date: 20201102
  Serious: Yes (Other)
  Sender: FDA-Public Use
  Company Number: US-ABBVIE-20K-163-3358083-00

PATIENT
  Sex: Male
  Weight: 72.64 kg

DRUGS (6)
  1. PANTOPRAZOLE [Concomitant]
     Active Substance: PANTOPRAZOLE
     Indication: ULCER
     Route: 065
  2. AZATHIOPRINE. [Concomitant]
     Active Substance: AZATHIOPRINE
     Indication: CROHN^S DISEASE
     Route: 065
  3. ACIDOPHILUS [Concomitant]
     Active Substance: LACTOBACILLUS ACIDOPHILUS
     Indication: CROHN^S DISEASE
     Dosage: 1 BILLION ACTIVE CULTURES
     Route: 065
  4. IBGARD [Concomitant]
     Indication: CROHN^S DISEASE
     Route: 065
  5. HUMIRA [Suspect]
     Active Substance: ADALIMUMAB
     Indication: CROHN^S DISEASE
     Route: 058
  6. HUMIRA [Suspect]
     Active Substance: ADALIMUMAB
     Route: 058
     Dates: start: 20200424

REACTIONS (10)
  - Nausea [Unknown]
  - Pyrexia [Unknown]
  - Therapeutic response shortened [Unknown]
  - Abdominal distension [Unknown]
  - Erythema [Recovered/Resolved]
  - Bronchitis [Recovered/Resolved]
  - Crohn^s disease [Recovered/Resolved with Sequelae]
  - Decreased appetite [Unknown]
  - Abdominal pain [Unknown]
  - Loss of consciousness [Unknown]

NARRATIVE: CASE EVENT DATE: 2020
